FAERS Safety Report 14159402 (Version 5)
Quarter: 2019Q2

REPORT INFORMATION
  Report Type: Spontaneous
  Country: US (occurrence: US)
  Receive Date: 20171106
  Receipt Date: 20190423
  Transmission Date: 20190711
  Serious: No
  Sender: FDA-Public Use
  Company Number: US-AMGEN-USASP2017165437

PATIENT
  Age: 64 Year
  Sex: Female
  Weight: 61.23 kg

DRUGS (5)
  1. HUMIRA [Suspect]
     Active Substance: ADALIMUMAB
     Indication: RHEUMATOID ARTHRITIS
     Dosage: UNK
     Route: 058
     Dates: start: 2015
  2. XELJANZ [Concomitant]
     Active Substance: TOFACITINIB CITRATE
     Dosage: 5 MILLIGRAM, QD
     Route: 065
     Dates: start: 2017
  3. M.T.X [Concomitant]
     Active Substance: METHOTREXATE
     Dosage: UNK
  4. XELJANZ [Concomitant]
     Active Substance: TOFACITINIB CITRATE
     Indication: RHEUMATOID ARTHRITIS
     Dosage: 5 MILLIGRAM, BID
     Route: 065
  5. ENBREL [Suspect]
     Active Substance: ETANERCEPT
     Indication: RHEUMATOID ARTHRITIS
     Dosage: UNK
     Route: 065
     Dates: start: 2016, end: 2017

REACTIONS (10)
  - Injection site pain [Unknown]
  - Blister [Not Recovered/Not Resolved]
  - Injection site hypersensitivity [Unknown]
  - Arthropathy [Unknown]
  - Chondropathy [Not Recovered/Not Resolved]
  - Vascular injury [Not Recovered/Not Resolved]
  - Therapeutic product effect incomplete [Not Recovered/Not Resolved]
  - Petechiae [Unknown]
  - Injection site haemorrhage [Unknown]
  - Skin haemorrhage [Unknown]

NARRATIVE: CASE EVENT DATE: 2016
